FAERS Safety Report 20484539 (Version 6)
Quarter: 2024Q1

REPORT INFORMATION
  Report Type: Spontaneous
  Country: KR (occurrence: KR)
  Receive Date: 20220217
  Receipt Date: 20240221
  Transmission Date: 20240410
  Serious: Yes (Hospitalization, Other)
  Sender: FDA-Public Use
  Company Number: KR-009507513-2202KOR003912

PATIENT
  Age: 60 Year
  Sex: Female
  Weight: 50.6 kg

DRUGS (9)
  1. PEMBROLIZUMAB [Interacting]
     Active Substance: PEMBROLIZUMAB
     Indication: Endometrial cancer
     Dosage: 200 MILLIGRAM
     Route: 042
     Dates: start: 20211222
  2. PEMBROLIZUMAB [Interacting]
     Active Substance: PEMBROLIZUMAB
     Dosage: 200 MILLIGRAM
     Route: 042
     Dates: start: 20220112
  3. PEMBROLIZUMAB [Interacting]
     Active Substance: PEMBROLIZUMAB
     Dosage: 200 MILLIGRAM
     Route: 042
     Dates: start: 20220211
  4. PEMBROLIZUMAB [Interacting]
     Active Substance: PEMBROLIZUMAB
     Dosage: 200 MILLIGRAM
     Route: 042
     Dates: start: 20220304
  5. LENVATINIB MESYLATE [Interacting]
     Active Substance: LENVATINIB MESYLATE
     Indication: Endometrial cancer
     Dosage: 20 MILLIGRAM, QD
     Route: 048
     Dates: start: 20211222, end: 20220127
  6. LENVATINIB MESYLATE [Interacting]
     Active Substance: LENVATINIB MESYLATE
     Dosage: 14 MILLIGRAM, QD
     Route: 048
     Dates: start: 20220211, end: 20220215
  7. LENVATINIB MESYLATE [Interacting]
     Active Substance: LENVATINIB MESYLATE
     Dosage: 10 MILLIGRAM, QD
     Route: 048
     Dates: start: 20220216, end: 20220228
  8. LYRICA [Concomitant]
     Active Substance: PREGABALIN
     Indication: Neuropathy peripheral
     Dosage: 150 MILLIGRAM, QD
     Route: 048
  9. XANAX [Concomitant]
     Active Substance: ALPRAZOLAM
     Indication: Prophylaxis
     Dosage: 0.125 MILLIGRAM, QD
     Route: 048

REACTIONS (12)
  - Mouth ulceration [Recovered/Resolved]
  - Pleural effusion [Recovered/Resolved]
  - Clostridium difficile colitis [Recovering/Resolving]
  - Diarrhoea [Recovered/Resolved]
  - Respiratory symptom [Recovering/Resolving]
  - Drug interaction [Unknown]
  - Incontinence [Recovering/Resolving]
  - Urine output decreased [Recovering/Resolving]
  - SARS-CoV-2 test positive [Recovering/Resolving]
  - Mouth ulceration [Recovering/Resolving]
  - Oedema peripheral [Recovering/Resolving]
  - Inappropriate schedule of product administration [Unknown]

NARRATIVE: CASE EVENT DATE: 20220111
